FAERS Safety Report 8358247-8 (Version None)
Quarter: 2012Q2

REPORT INFORMATION
  Report Type: 
  Country: None (occurrence: None)
  Receive Date: 20120514
  Receipt Date: 20120503
  Transmission Date: 20120825
  Serious: Yes (Hospitalization)
  Sender: FDA-Public Use
  Company Number: DE-GLAXOSMITHKLINE-B0800941A

PATIENT
  Sex: Female
  Weight: 64 kg

DRUGS (11)
  1. PALONOSETRON [Concomitant]
     Dosage: .25MG PER DAY
     Dates: start: 20120315
  2. EPOGEN [Concomitant]
  3. LAPATINIB [Suspect]
     Indication: BREAST CANCER
     Dosage: 750MG PER DAY
     Route: 048
     Dates: start: 20120301
  4. CARBOPLATIN [Suspect]
     Indication: BREAST CANCER
     Dosage: 300MG WEEKLY
     Route: 042
     Dates: start: 20120301
  5. TRASTUZUMAB [Suspect]
     Indication: BREAST CANCER
     Dosage: 384MG WEEKLY
     Route: 042
     Dates: start: 20120301
  6. DOXORUBICIN HCL [Suspect]
     Indication: BREAST CANCER
     Dosage: 35MG WEEKLY
     Route: 042
     Dates: start: 20120301
  7. RANITIDINE HCL [Concomitant]
     Dosage: 50MG PER DAY
     Dates: start: 20120301
  8. PACLITAXEL [Suspect]
     Indication: BREAST CANCER
     Dosage: 139MG WEEKLY
     Route: 042
     Dates: start: 20120301
  9. DEXAMETHASONE [Concomitant]
     Dosage: 12MG PER DAY
     Dates: start: 20120301
  10. CLEMASTIN [Concomitant]
     Dates: start: 20120301
  11. LENOGRASTIM [Concomitant]

REACTIONS (1)
  - GENERAL PHYSICAL HEALTH DETERIORATION [None]
